FAERS Safety Report 9699038 (Version 1)
Quarter: 2013Q4

REPORT INFORMATION
  Report Type: Report from Study
  Country: DE (occurrence: TR)
  Receive Date: 20131120
  Receipt Date: 20131120
  Transmission Date: 20140711
  Serious: Yes (Other)
  Sender: FDA-Public Use
  Company Number: DE-ACTELION-A-NJ2013-91466

PATIENT
  Age: 61 Year
  Sex: Male

DRUGS (1)
  1. VENTAVIS [Suspect]
     Indication: PULMONARY HYPERTENSION
     Dosage: UNK, 6X 1
     Route: 055
     Dates: start: 20130628, end: 20131020

REACTIONS (2)
  - Pulmonary fibrosis [Unknown]
  - Off label use [Unknown]
